FAERS Safety Report 26123000 (Version 1)
Quarter: 2025Q4

REPORT INFORMATION
  Report Type: Spontaneous
  Country: CN (occurrence: CN)
  Receive Date: 20251204
  Receipt Date: 20251204
  Transmission Date: 20260117
  Serious: Yes (Other)
  Sender: PFIZER
  Company Number: CN-TAKEDA-2025TUS108880

PATIENT
  Age: 77 Year
  Sex: Male

DRUGS (4)
  1. BRENTUXIMAB VEDOTIN [Suspect]
     Active Substance: BRENTUXIMAB VEDOTIN
     Indication: Angiocentric lymphoma
     Dosage: 100 MG, 1X/DAY
     Route: 041
     Dates: start: 20251107, end: 20251107
  2. METHOTREXATE SODIUM [Suspect]
     Active Substance: METHOTREXATE SODIUM
     Indication: Angiocentric lymphoma
     Dosage: 1.5 G, 1X/DAY
     Route: 041
     Dates: start: 20251107, end: 20251107
  3. DEXAMETHASONE SODIUM PHOSPHATE [Suspect]
     Active Substance: DEXAMETHASONE SODIUM PHOSPHATE
     Indication: Angiocentric lymphoma
     Dosage: 3 MG, 1X/DAY
     Route: 041
     Dates: start: 20251106, end: 20251109
  4. PEGASPARGASE [Suspect]
     Active Substance: PEGASPARGASE
     Indication: Angiocentric lymphoma
     Dosage: 3000 IU, 1X/DAY
     Route: 030
     Dates: start: 20251108, end: 20251109

REACTIONS (1)
  - Myelosuppression [Unknown]

NARRATIVE: CASE EVENT DATE: 20251110
